FAERS Safety Report 13813259 (Version 2)
Quarter: 2017Q4

REPORT INFORMATION
  Report Type: Spontaneous
  Country: IL (occurrence: IL)
  Receive Date: 20170729
  Receipt Date: 20171110
  Transmission Date: 20180320
  Serious: Yes (Hospitalization)
  Sender: FDA-Public Use
  Company Number: IL-AMGEN-ISRSP2017112938

PATIENT
  Sex: Male

DRUGS (12)
  1. TESTOSTERONE. [Concomitant]
     Active Substance: TESTOSTERONE
  2. CALCIUM + VIT D [Concomitant]
     Active Substance: CALCIUM\VITAMIN D
  3. OMEPRADEX [Concomitant]
     Active Substance: OMEPRAZOLE
  4. VITAMIN B12 [Concomitant]
     Active Substance: CYANOCOBALAMIN
  5. LIPITOR [Concomitant]
     Active Substance: ATORVASTATIN CALCIUM
  6. PROLIA [Suspect]
     Active Substance: DENOSUMAB
     Indication: OSTEOPOROSIS
     Dosage: 60 MG, UNK
     Route: 065
  7. VECTOR PLUS [Concomitant]
  8. MICROPIRIN [Concomitant]
     Active Substance: ASPIRIN
  9. CARDILOC [Concomitant]
     Active Substance: BISOPROLOL FUMARATE
  10. DUODART [Concomitant]
     Active Substance: DUTASTERIDE\TAMSULOSIN
  11. PLAVIX [Concomitant]
     Active Substance: CLOPIDOGREL BISULFATE
  12. AVONEX [Concomitant]
     Active Substance: INTERFERON BETA-1A
     Indication: MULTIPLE SCLEROSIS
     Dosage: 30 MUG, QWK
     Route: 030
     Dates: start: 20021214

REACTIONS (1)
  - Catheterisation cardiac [Unknown]
